FAERS Safety Report 7660853-0 (Version None)
Quarter: 2011Q3

REPORT INFORMATION
  Report Type: 
  Country: None (occurrence: None)
  Receive Date: 20110805
  Receipt Date: 20101109
  Transmission Date: 20111222
  Serious: No
  Sender: FDA-Public Use
  Company Number: US-ABBOTT-10P-163-0684232-00

PATIENT
  Sex: Female
  Weight: 73.548 kg

DRUGS (3)
  1. UNKNOWN MEDICATIONS [Concomitant]
     Indication: BLOOD PRESSURE
  2. NIASPAN [Suspect]
     Indication: LOW DENSITY LIPOPROTEIN INCREASED
     Dates: start: 20101001
  3. ASPIRIN [Concomitant]
     Indication: PRODUCT USED FOR UNKNOWN INDICATION

REACTIONS (3)
  - GENERALISED ERYTHEMA [None]
  - HOT FLUSH [None]
  - VITAMIN B COMPLEX DEFICIENCY [None]
